FAERS Safety Report 20974132 (Version 1)
Quarter: 2022Q2

REPORT INFORMATION
  Report Type: Spontaneous
  Country: US (occurrence: None)
  Receive Date: 20220616
  Receipt Date: 20220616
  Transmission Date: 20220721
  Serious: Yes (Death)
  Sender: FDA-Public Use
  Company Number: None

PATIENT
  Age: 39 Year
  Sex: Male

DRUGS (1)
  1. SOFOSBUVIR\VELPATASVIR [Suspect]
     Active Substance: SOFOSBUVIR\VELPATASVIR
     Dosage: TAKE ONE TABLET EVERY DAY BY MOUTH?
     Route: 048
     Dates: start: 20220415

REACTIONS (2)
  - Death [None]
  - Overdose [None]

NARRATIVE: CASE EVENT DATE: 20220515
